FAERS Safety Report 5194561-5 (Version None)
Quarter: 2006Q4

REPORT INFORMATION
  Report Type: 
  Country: None (occurrence: None)
  Receive Date: 20061221
  Receipt Date: 20061212
  Transmission Date: 20070319
  Serious: Yes (Other)
  Sender: FDA-Public Use
  Company Number: 8020809

PATIENT
  Age: 16 Year
  Sex: Female
  Weight: 50.7 kg

DRUGS (1)
  1. KEPPRA [Suspect]
     Indication: EPILEPSY
     Dosage: 1000 MG 2/D PO
     Route: 048
     Dates: start: 20060801, end: 20061201

REACTIONS (4)
  - AGGRESSION [None]
  - APATHY [None]
  - DEPRESSION [None]
  - FEAR OF DEATH [None]
